FAERS Safety Report 18859435 (Version 1)
Quarter: 2021Q1

REPORT INFORMATION
  Report Type: Spontaneous
  Country: US (occurrence: US)
  Receive Date: 20210206
  Receipt Date: 20210206
  Transmission Date: 20210420
  Serious: Yes (Hospitalization)
  Sender: FDA-Public Use
  Company Number: None

PATIENT
  Age: 29 Year
  Sex: Male
  Weight: 84.2 kg

DRUGS (5)
  1. CISPLATIN. [Suspect]
     Active Substance: CISPLATIN
     Dates: end: 20210130
  2. IFOSFAMIDE. [Suspect]
     Active Substance: IFOSFAMIDE
     Dates: end: 20210130
  3. FLUCONAZOL [Concomitant]
     Active Substance: FLUCONAZOLE
  4. CIPROFLOXACIN. [Concomitant]
     Active Substance: CIPROFLOXACIN
  5. TAXOL [Suspect]
     Active Substance: PACLITAXEL
     Dates: end: 20210126

REACTIONS (4)
  - Vomiting [None]
  - Mucosal inflammation [None]
  - Febrile neutropenia [None]
  - Nausea [None]

NARRATIVE: CASE EVENT DATE: 20210203
